FAERS Safety Report 9552451 (Version 1)
Quarter: 2013Q3

REPORT INFORMATION
  Report Type: Spontaneous
  Country: US (occurrence: US)
  Receive Date: 20130925
  Receipt Date: 20130925
  Transmission Date: 20140515
  Serious: No
  Sender: FDA-Public Use
  Company Number: US-PFIZER INC-2013273724

PATIENT
  Age: 56 Year
  Sex: Male
  Weight: 88.44 kg

DRUGS (8)
  1. NEURONTIN [Suspect]
     Indication: NEURALGIA
     Dosage: UNK
     Dates: start: 2004, end: 2004
  2. NEURONTIN [Suspect]
     Indication: BONE DISORDER
  3. GABAPENTIN [Suspect]
     Indication: NEURALGIA
     Dosage: UNK
  4. GABAPENTIN [Suspect]
     Indication: BONE DISORDER
  5. LYRICA [Suspect]
     Indication: NEURALGIA
     Dosage: 50 MG, 3X/DAY
     Dates: start: 2005
  6. LYRICA [Suspect]
     Indication: BONE DISORDER
  7. LISINOPRIL [Concomitant]
     Indication: HYPERTENSION
     Dosage: 5 MG, 2X/DAY
     Dates: start: 1994
  8. AMLODIPINE [Concomitant]
     Indication: HYPERTENSION
     Dosage: 10 MG, 1X/DAY
     Dates: start: 1994

REACTIONS (3)
  - Vomiting [Recovering/Resolving]
  - Diarrhoea [Recovering/Resolving]
  - Abdominal discomfort [Recovering/Resolving]
